FAERS Safety Report 8781973 (Version 2)
Quarter: 2012Q4

REPORT INFORMATION
  Report Type: 
  Country: US (occurrence: US)
  Receive Date: 20120913
  Receipt Date: 20121024
  Transmission Date: 20130627
  Serious: Yes (Hospitalization, Other)
  Sender: FDA-Public Use
  Company Number: US-AMGEN-USASP2012057381

PATIENT
  Sex: Male

DRUGS (2)
  1. ENBREL [Suspect]
     Indication: RHEUMATOID ARTHRITIS
     Dosage: 50 mg, UNK
     Route: 058
     Dates: start: 20100615
  2. ENBREL [Suspect]
     Indication: PSORIATIC ARTHROPATHY

REACTIONS (8)
  - Heart valve incompetence [Unknown]
  - Pneumonia [Unknown]
  - Toe amputation [Unknown]
  - Oedema peripheral [Unknown]
  - Gait disturbance [Unknown]
  - Emphysema [Unknown]
  - Laryngitis [Unknown]
  - Burning sensation [Unknown]
